FAERS Safety Report 7576952-8 (Version None)
Quarter: 2011Q2

REPORT INFORMATION
  Report Type: 
  Country: None (occurrence: None)
  Receive Date: 20110628
  Receipt Date: 20110113
  Transmission Date: 20111010
  Serious: Yes (Hospitalization, Other)
  Sender: FDA-Public Use
  Company Number: US-BAYER-201039439NA

PATIENT
  Age: 31 Year
  Sex: Female
  Weight: 63.492 kg

DRUGS (8)
  1. YASMIN [Suspect]
     Indication: CONTRACEPTION
     Dosage: UNK
     Route: 048
     Dates: start: 20040101, end: 20070101
  2. YAZ [Suspect]
     Indication: CONTRACEPTION
     Dosage: UNK
     Dates: start: 20061106
  3. BISMUTH SUBSALICYLATE [Concomitant]
  4. ULTRAM SR [Concomitant]
     Indication: MIGRAINE
  5. ORAL CONTRACEPTIVE NOS [Concomitant]
  6. MOTRIN [Concomitant]
  7. YASMIN [Suspect]
     Dosage: UNK
     Dates: start: 20060502, end: 20060904
  8. VICODIN [Concomitant]

REACTIONS (11)
  - DIARRHOEA [None]
  - DEPRESSION [None]
  - CHOLECYSTITIS CHRONIC [None]
  - ABDOMINAL DISTENSION [None]
  - ANXIETY [None]
  - CHOLELITHIASIS [None]
  - SCAR [None]
  - DYSPEPSIA [None]
  - CHOLECYSTECTOMY [None]
  - CHOLECYSTITIS ACUTE [None]
  - CONSTIPATION [None]
